FAERS Safety Report 10220578 (Version 1)
Quarter: 2014Q2

REPORT INFORMATION
  Report Type: Spontaneous
  Country: US (occurrence: None)
  Receive Date: 20140605
  Receipt Date: 20140605
  Transmission Date: 20141212
  Serious: No
  Sender: FDA-Public Use
  Company Number: None

PATIENT
  Age: 22 Year
  Sex: Male
  Weight: 72.58 kg

DRUGS (1)
  1. KLONOPIN [Suspect]
     Indication: DYSKINESIA
     Dosage: 2-3 PILLS, TWICE DAILY
     Dates: start: 20100601, end: 20101201

REACTIONS (12)
  - Dysstasia [None]
  - Gait disturbance [None]
  - Arthropathy [None]
  - Fall [None]
  - Abnormal behaviour [None]
  - Emotional disorder [None]
  - Crying [None]
  - Job dissatisfaction [None]
  - Mood altered [None]
  - Somnolence [None]
  - Paralysis [None]
  - Unevaluable event [None]
